FAERS Safety Report 23841845 (Version 6)
Quarter: 2024Q3

REPORT INFORMATION
  Report Type: Spontaneous
  Country: US (occurrence: US)
  Receive Date: 20240510
  Receipt Date: 20240912
  Transmission Date: 20241016
  Serious: No
  Sender: BIOGEN
  Company Number: US-BIOGEN-2024BI01259726

PATIENT
  Sex: Female

DRUGS (21)
  1. VUMERITY [Suspect]
     Active Substance: DIROXIMEL FUMARATE
     Indication: Multiple sclerosis
     Dosage: STARTING DOSE
     Route: 050
     Dates: start: 20240401, end: 20240408
  2. VUMERITY [Suspect]
     Active Substance: DIROXIMEL FUMARATE
     Dosage: MAINTENANCE DOSE
     Route: 050
     Dates: start: 20240409
  3. AMLODIPINE BESYLATE [Concomitant]
     Active Substance: AMLODIPINE BESYLATE
     Route: 050
  4. TOVIAZ [Concomitant]
     Active Substance: FESOTERODINE FUMARATE
     Route: 050
  5. LEVOTHYROXINE SODIUM [Concomitant]
     Active Substance: LEVOTHYROXINE SODIUM
     Route: 050
  6. ALFALFA [Concomitant]
     Active Substance: ALFALFA
     Route: 050
  7. VITAMIN D [Concomitant]
     Active Substance: VITAMIN D NOS
     Route: 050
  8. ESTRADERM [Concomitant]
     Active Substance: ESTRADIOL
     Route: 050
  9. VITAMIN B COMPLEX [Concomitant]
     Active Substance: CYANOCOBALAMIN\DEXPANTHENOL\NIACINAMIDE\PYRIDOXINE HYDROCHLORIDE\RIBOFLAVIN 5^-PHOSPHATE SODIUM\THIA
     Dosage: RUGBY
     Route: 050
  10. D3-5 [Concomitant]
     Route: 050
  11. ASPIRIN [Concomitant]
     Active Substance: ASPIRIN
     Route: 050
  12. VITAMIN C [Concomitant]
     Active Substance: ASCORBIC ACID
     Route: 050
  13. METHOCARBAMOL [Concomitant]
     Active Substance: METHOCARBAMOL
     Route: 050
  14. METOPROLOL SUCCINATE [Concomitant]
     Active Substance: METOPROLOL SUCCINATE
     Route: 050
  15. LUTEIN [Concomitant]
     Active Substance: LUTEIN
     Route: 050
  16. GLYCOPYRROLATE [Concomitant]
     Active Substance: GLYCOPYRROLATE
     Dosage: 0.2MG/ML VIAL (25/PK)
     Route: 050
  17. PREGABALIN [Concomitant]
     Active Substance: PREGABALIN
     Route: 050
  18. FISH OIL [Concomitant]
     Active Substance: FISH OIL
     Route: 050
  19. BEET ROOT [Concomitant]
     Route: 050
  20. EVENING PRIMROSE OIL\HERBALS [Concomitant]
     Active Substance: EVENING PRIMROSE OIL\HERBALS
     Route: 050
  21. FLAXSEED [Concomitant]
     Active Substance: FLAX SEED
     Route: 050

REACTIONS (15)
  - Product dose omission in error [Unknown]
  - Pain in extremity [Not Recovered/Not Resolved]
  - Muscle tightness [Unknown]
  - Arthralgia [Unknown]
  - Joint swelling [Unknown]
  - Muscular weakness [Unknown]
  - Coordination abnormal [Unknown]
  - Musculoskeletal chest pain [Unknown]
  - Headache [Unknown]
  - Constipation [Unknown]
  - Myalgia [Unknown]
  - Pruritus [Unknown]
  - Hot flush [Unknown]
  - Abdominal pain upper [Recovered/Resolved]
  - Nausea [Recovered/Resolved]

NARRATIVE: CASE EVENT DATE: 20240101
